FAERS Safety Report 5354095-1 (Version None)
Quarter: 2007Q2

REPORT INFORMATION
  Report Type: 
  Country: None (occurrence: None)
  Receive Date: 20070612
  Receipt Date: 20070605
  Transmission Date: 20071010
  Serious: Yes (Other)
  Sender: FDA-Public Use
  Company Number: B0474639A

PATIENT
  Sex: Male

DRUGS (5)
  1. AVANDIA [Suspect]
     Indication: DRUG USE FOR UNKNOWN INDICATION
     Dosage: 4MG TWICE PER DAY
     Route: 065
     Dates: end: 20070522
  2. DIAMICRON [Concomitant]
     Route: 065
  3. ZOCOR [Concomitant]
     Route: 065
  4. TENORMIN [Concomitant]
     Route: 065
  5. LASIX [Concomitant]
     Route: 065

REACTIONS (2)
  - CARDIOMYOPATHY [None]
  - OEDEMA PERIPHERAL [None]
